FAERS Safety Report 13632760 (Version 1)
Quarter: 2017Q2

REPORT INFORMATION
  Report Type: Spontaneous
  Country: US (occurrence: US)
  Receive Date: 20170531
  Receipt Date: 20170531
  Transmission Date: 20170830
  Serious: No
  Sender: FDA-Public Use
  Company Number: US-ASTELLAS-1478138

PATIENT
  Sex: Male

DRUGS (4)
  1. TARCEVA [Suspect]
     Active Substance: ERLOTINIB HYDROCHLORIDE
     Route: 048
  2. TARCEVA [Suspect]
     Active Substance: ERLOTINIB HYDROCHLORIDE
     Route: 048
     Dates: start: 20141030
  3. TARCEVA [Suspect]
     Active Substance: ERLOTINIB HYDROCHLORIDE
     Route: 048
     Dates: start: 20141104
  4. TARCEVA [Suspect]
     Active Substance: ERLOTINIB HYDROCHLORIDE
     Indication: PULMONARY MASS
     Route: 048
     Dates: start: 20141008

REACTIONS (15)
  - Acne [Unknown]
  - Tongue erythema [Unknown]
  - Chills [Unknown]
  - Eructation [Unknown]
  - Rash [Unknown]
  - Eye irritation [Unknown]
  - Lip swelling [Unknown]
  - Back pain [Unknown]
  - Pruritus [Unknown]
  - Thermal burn [Unknown]
  - Swollen tongue [Unknown]
  - Chest pain [Unknown]
  - Procedural pain [Unknown]
  - Lacrimation increased [Unknown]
  - Oropharyngeal pain [Unknown]
